FAERS Safety Report 8761545 (Version 1)
Quarter: 2012Q4

REPORT INFORMATION
  Report Type: 
  Country: US (occurrence: US)
  Receive Date: 20120830
  Receipt Date: 20120830
  Transmission Date: 20130627
  Serious: Yes (Other)
  Sender: FDA-Public Use
  Company Number: US-009507513-1208USA011099

PATIENT

DRUGS (3)
  1. JANUVIA [Suspect]
     Indication: TYPE 2 DIABETES MELLITUS
     Dosage: 100 mg, qd
     Route: 048
     Dates: start: 201108
  2. LISINOPRIL [Concomitant]
  3. TOPROL XL TABLETS [Concomitant]

REACTIONS (2)
  - Pancreatitis acute [Recovering/Resolving]
  - Cholelithiasis [None]
